FAERS Safety Report 14262112 (Version 3)
Quarter: 2018Q4

REPORT INFORMATION
  Report Type: Spontaneous
  Country: GB (occurrence: GB)
  Receive Date: 20171208
  Receipt Date: 20181105
  Transmission Date: 20190204
  Serious: Yes (Life-Threatening, Other)
  Sender: FDA-Public Use
  Company Number: GB-SUN PHARMACEUTICAL INDUSTRIES LTD-2017RR-156542

PATIENT
  Age: 69 Year
  Sex: Female

DRUGS (2)
  1. OCTREOTIDE. [Suspect]
     Active Substance: OCTREOTIDE
     Indication: NEUROENDOCRINE TUMOUR
     Dosage: 5000 ?G IN 50 ML 0.9% NORMAL SALINE RUNNING FROM 1 TO 5 ML/HOUR
     Route: 065
  2. NORMAL SALINE 0.9 % [Suspect]
     Active Substance: SODIUM CHLORIDE
     Indication: NEUROENDOCRINE TUMOUR
     Dosage: 50 ML 0.9% NORMAL SALINE RUNNING FROM 1 TO 5 ML/HOUR
     Route: 065

REACTIONS (1)
  - Drug ineffective [Unknown]
